FAERS Safety Report 12788609 (Version 3)
Quarter: 2016Q4

REPORT INFORMATION
  Report Type: Spontaneous
  Country: US (occurrence: US)
  Receive Date: 20160928
  Receipt Date: 20161020
  Transmission Date: 20170207
  Serious: No
  Sender: FDA-Public Use
  Company Number: US-PFIZER INC-2016454188

PATIENT
  Sex: Female

DRUGS (3)
  1. GELATIN [Suspect]
     Active Substance: GELATIN
     Dosage: UNK
  2. EFFEXOR XR [Suspect]
     Active Substance: VENLAFAXINE HYDROCHLORIDE
     Dosage: 150 MG, UNK
  3. EFFEXOR XR [Suspect]
     Active Substance: VENLAFAXINE HYDROCHLORIDE
     Dosage: 225 MG (3X75MG CAPSULES), UNK

REACTIONS (7)
  - Inflammation [Unknown]
  - Gastrointestinal inflammation [Unknown]
  - Abdominal distension [Unknown]
  - Dysstasia [Unknown]
  - Gastrointestinal pain [Unknown]
  - Pain [Unknown]
  - Reaction to drug excipients [Unknown]
